FAERS Safety Report 15984619 (Version 1)
Quarter: 2019Q1

REPORT INFORMATION
  Report Type: Spontaneous
  Country: US (occurrence: US)
  Receive Date: 20190219
  Receipt Date: 20190219
  Transmission Date: 20190418
  Serious: No
  Sender: FDA-Public Use
  Company Number: None

PATIENT

DRUGS (2)
  1. GABAPENTIN 800MG [Suspect]
     Active Substance: GABAPENTIN
  2. LYRICA [Suspect]
     Active Substance: PREGABALIN

REACTIONS (1)
  - Drug ineffective [None]
